FAERS Safety Report 19840746 (Version 1)
Quarter: 2021Q3

REPORT INFORMATION
  Report Type: Spontaneous
  Country: IN (occurrence: IN)
  Receive Date: 20210916
  Receipt Date: 20210916
  Transmission Date: 20211014
  Serious: Yes (Other)
  Sender: FDA-Public Use
  Company Number: IN-APNAR-000111

PATIENT
  Age: 20 Year
  Sex: Female

DRUGS (1)
  1. FLUOXETINE [Suspect]
     Active Substance: FLUOXETINE HYDROCHLORIDE
     Indication: DEPRESSION

REACTIONS (4)
  - Decreased appetite [Unknown]
  - Malaise [Unknown]
  - Liver injury [Recovered/Resolved]
  - Skin reaction [Recovered/Resolved]
